FAERS Safety Report 4547257-4 (Version None)
Quarter: 2005Q1

REPORT INFORMATION
  Report Type: 
  Country: None (occurrence: None)
  Receive Date: 20050105
  Receipt Date: 20041216
  Transmission Date: 20050727
  Serious: Yes (Other)
  Sender: FDA-Public Use
  Company Number: US_0412109524

PATIENT
  Age: 73 Year
  Sex: Female
  Weight: 86 kg

DRUGS (2)
  1. HUMULIN N [Suspect]
     Dosage: 20 UG/2 DAY
  2. HUMULIN 70/30 [Suspect]
     Dosage: 20 U/2 DAY

REACTIONS (8)
  - AMNESIA [None]
  - ARTERIAL OCCLUSIVE DISEASE [None]
  - BALANCE DISORDER [None]
  - CORONARY ARTERY SURGERY [None]
  - DYSPNOEA [None]
  - HEARING IMPAIRED [None]
  - NEUROPATHY [None]
  - RETINOPATHY [None]
